FAERS Safety Report 6203044-2 (Version None)
Quarter: 2009Q2

REPORT INFORMATION
  Report Type: 
  Country: None (occurrence: None)
  Receive Date: 20090521
  Receipt Date: 20090521
  Transmission Date: 20091009
  Serious: Yes (Other)
  Sender: FDA-Public Use
  Company Number: None

PATIENT
  Age: 41 Year
  Sex: Female
  Weight: 54.8852 kg

DRUGS (1)
  1. AMITIZA [Suspect]
     Indication: CONSTIPATION
     Dosage: ONE CAPSULE 2 TIMES A DAY PO
     Route: 048
     Dates: start: 20090308, end: 20090517

REACTIONS (3)
  - COUGH [None]
  - DYSPNOEA [None]
  - RHINORRHOEA [None]
